FAERS Safety Report 4727457-0 (Version None)
Quarter: 2005Q3

REPORT INFORMATION
  Report Type: 
  Country: None (occurrence: None)
  Receive Date: 20050728
  Receipt Date: 20040630
  Transmission Date: 20060218
  Serious: Yes (Life-Threatening, Hospitalization)
  Sender: FDA-Public Use
  Company Number: NO-ROCHE-372577

PATIENT
  Age: 37 Year
  Sex: Male

DRUGS (12)
  1. CELLCEPT [Suspect]
     Route: 048
     Dates: start: 20031222, end: 20040403
  2. PROGRAF [Concomitant]
     Dosage: DOSAGE REGIMEN REPORTED AS 5 MG X 2 DAILY
     Route: 048
     Dates: start: 20031222, end: 20040326
  3. PREDNISOLONE [Concomitant]
     Dosage: DOSAGE REGIMEN REPORTED AS 20 MG X 2 DAILY
     Route: 048
     Dates: start: 20031222
  4. ARANESP [Concomitant]
     Route: 051
  5. ROCALTROL [Concomitant]
     Dosage: TAKEN FOR MORE THAN ONE YEAR. DOSAGE REGIMEN REPORTED AS 0.25 MCG X 1 DAILY
     Route: 048
  6. ADALAT [Concomitant]
     Indication: HYPERTENSION
     Dosage: TAKEN FOR MORE THAN ONE YEAR. DOSAGE REGIMEN REPORTED AS 60 MG X 1 DAILY
     Route: 048
  7. HUMALOG [Concomitant]
     Dosage: TAKEN FOR MORE THAN ONE YEAR.
     Route: 058
  8. INSULATARD NPH HUMAN [Concomitant]
     Dosage: TAKEN FOR MORE THAN ONE YEAR.
     Route: 058
  9. CISORDINOL [Concomitant]
     Indication: SCHIZOPHRENIA
     Dosage: TAKEN FOR MORE THAN ONE YEAR. DOSAGE REGIMEN REPORTED AS 2 MG X 2 DAILY
     Route: 048
  10. FUROSEMIDE [Concomitant]
     Dosage: TAKEN FOR MORE THAN ONE YEAR. DOSAGE REGIMEN REPORTED AS 40 MG X 1 DAILY
     Route: 048
  11. AKINETON [Concomitant]
     Dosage: TAKEN FOR MORE THAN ONE YEAR. DOSAGE REGIMEN REPORTED AS 1 MG X 2 DAILY
     Route: 048
  12. NEXIUM [Concomitant]
     Indication: REFLUX GASTRITIS
     Dosage: DOSAGE REGIMEN REPORTED AS 40 MG X 1 DAILY
     Route: 048
     Dates: start: 20031215

REACTIONS (1)
  - APLASIA PURE RED CELL [None]
